FAERS Safety Report 5973173-7 (Version None)
Quarter: 2008Q4

REPORT INFORMATION
  Report Type: 
  Country: None (occurrence: None)
  Receive Date: 20081201
  Receipt Date: 20081121
  Transmission Date: 20090506
  Serious: Yes (Other)
  Sender: FDA-Public Use
  Company Number: PHHY2008FR29445

PATIENT
  Sex: Female

DRUGS (1)
  1. ACLASTA [Suspect]
     Dosage: UNK
     Route: 042
     Dates: start: 20081119

REACTIONS (5)
  - EXTRAVASATION [None]
  - HAEMATOMA [None]
  - INFUSION SITE ERYTHEMA [None]
  - PYREXIA [None]
  - VOMITING [None]
